APPROVED DRUG PRODUCT: PITOCIN
Active Ingredient: OXYTOCIN
Strength: 100USP UNITS/10ML (10USP UNITS/ML)
Dosage Form/Route: INJECTABLE;INJECTION
Application: N018261 | Product #002 | TE Code: AP
Applicant: PH HEALTH LTD
Approved: Jul 27, 2007 | RLD: Yes | RS: No | Type: RX